FAERS Safety Report 7560468-9 (Version None)
Quarter: 2011Q2

REPORT INFORMATION
  Report Type: 
  Country: None (occurrence: None)
  Receive Date: 20110621
  Receipt Date: 20110613
  Transmission Date: 20111010
  Serious: Yes (Death, Hospitalization, Other)
  Sender: FDA-Public Use
  Company Number: US-BRISTOL-MYERS SQUIBB COMPANY-14345607

PATIENT
  Age: 77 Year
  Sex: Female

DRUGS (10)
  1. PAXIL [Concomitant]
     Dates: start: 20080731
  2. ATENOLOL [Concomitant]
     Route: 048
     Dates: start: 20051024
  3. OXYCODONE HCL [Concomitant]
     Dates: start: 20051024, end: 20090130
  4. CELEBREX [Concomitant]
     Dates: start: 20051024, end: 20081001
  5. CARTIA XT [Concomitant]
     Dates: start: 20051212
  6. CARDIZEM [Concomitant]
     Dates: start: 20051212
  7. WARFARIN SODIUM [Suspect]
     Indication: THROMBOSIS PROPHYLAXIS
     Dosage: DOSES VARY INTERRUPTED ON 01OCT2008
     Route: 048
     Dates: start: 20080825, end: 20081001
  8. PLACEBO [Suspect]
     Indication: THROMBOSIS PROPHYLAXIS
     Dosage: INTERRUPTED ON 01OCT2008.
     Route: 048
     Dates: start: 20080825, end: 20081001
  9. FUROSEMIDE [Concomitant]
     Dosage: ALSO ON 29JAN08
     Dates: start: 20051024
  10. SINGULAIR [Concomitant]
     Dates: start: 20060612

REACTIONS (4)
  - COLON CANCER [None]
  - ATRIAL FIBRILLATION [None]
  - CARDIAC FAILURE CONGESTIVE [None]
  - IRON DEFICIENCY ANAEMIA [None]
